FAERS Safety Report 16954265 (Version 1)
Quarter: 2019Q4

REPORT INFORMATION
  Report Type: Spontaneous
  Country: US (occurrence: US)
  Receive Date: 20191023
  Receipt Date: 20191023
  Transmission Date: 20200122
  Serious: No
  Sender: FDA-Public Use
  Company Number: US-ABBVIE-19S-163-2646189-00

PATIENT
  Sex: Female

DRUGS (2)
  1. LUPRON DEPOT [Suspect]
     Active Substance: LEUPROLIDE ACETATE
     Indication: ENDOMETRIOSIS
     Route: 065
     Dates: start: 2017
  2. LUPRON DEPOT [Suspect]
     Active Substance: LEUPROLIDE ACETATE
     Route: 065
     Dates: start: 2015

REACTIONS (7)
  - Back pain [Unknown]
  - Impaired work ability [Unknown]
  - Drug interaction [Unknown]
  - Drug ineffective [Unknown]
  - Menopausal symptoms [Unknown]
  - Gait inability [Unknown]
  - Pain in extremity [Unknown]
